FAERS Safety Report 5531267-4 (Version None)
Quarter: 2007Q4

REPORT INFORMATION
  Report Type: 
  Country: None (occurrence: None)
  Receive Date: 20071127
  Receipt Date: 20071114
  Transmission Date: 20080405
  Serious: Yes (Disabling)
  Sender: FDA-Public Use
  Company Number: GXKR2007SE09497

PATIENT
  Sex: Male

DRUGS (7)
  1. METFORMIN (NGX)(METFORMIN) UNKNOWN, 850MG [Suspect]
     Indication: DIABETES MELLITUS
     Dosage: 1700 MG, ORAL
     Route: 048
     Dates: start: 20040101
  2. ATENOLOL [Suspect]
     Indication: HYPERTENSION
     Dosage: 100 MG; ORAL
     Route: 048
     Dates: start: 19940101
  3. ZIAGEN [Suspect]
     Indication: HIV INFECTION
     Dosage: 600 MG, ORAL
     Route: 048
     Dates: start: 20050101
  4. VIRAMUNE [Suspect]
     Indication: HIV INFECTION
     Dosage: 400MG; ORAL
     Route: 048
     Dates: start: 20050101
  5. VIDEX [Suspect]
     Indication: HIV INFECTION
     Dosage: 400MG; ORAL
     Route: 048
     Dates: start: 20050101
  6. STAVUDINE [Suspect]
     Indication: HIV INFECTION
     Dosage: ORAL
     Route: 048
     Dates: start: 20040101
  7. LAMIVUDINE [Suspect]
     Indication: HIV INFECTION
     Dosage: ORAL
     Route: 048
     Dates: start: 20040101

REACTIONS (1)
  - OSTEONECROSIS [None]
